FAERS Safety Report 15332654 (Version 2)
Quarter: 2018Q3

REPORT INFORMATION
  Report Type: Spontaneous
  Country: US (occurrence: US)
  Receive Date: 20180830
  Receipt Date: 20180919
  Transmission Date: 20181010
  Serious: No
  Sender: FDA-Public Use
  Company Number: US-CELGENEUS-USA-20180701025

PATIENT
  Age: 16 Year
  Sex: Female

DRUGS (2)
  1. OTEZLA [Suspect]
     Active Substance: APREMILAST
     Indication: PSORIASIS
     Dosage: 30 MILLIGRAM
     Route: 048
     Dates: start: 20170203
  2. OTEZLA [Suspect]
     Active Substance: APREMILAST
     Indication: DRUG ADMINISTERED TO PATIENT OF INAPPROPRIATE AGE
     Dosage: 15 MILLIGRAM
     Route: 048
     Dates: start: 20170224

REACTIONS (2)
  - Therapy non-responder [Unknown]
  - Nausea [Unknown]

NARRATIVE: CASE EVENT DATE: 201702
